FAERS Safety Report 17260924 (Version 3)
Quarter: 2020Q1

REPORT INFORMATION
  Report Type: Report from Study
  Country: None (occurrence: DE)
  Receive Date: 20200113
  Receipt Date: 20200123
  Transmission Date: 20200409
  Serious: Yes (Hospitalization)
  Sender: FDA-Public Use
  Company Number: DE-ABBVIE-20K-062-3227381-00

PATIENT
  Age: 84 Year
  Sex: Female
  Weight: 55 kg

DRUGS (9)
  1. DUODOPA [Suspect]
     Active Substance: CARBIDOPA\LEVODOPA
     Indication: PARKINSON^S DISEASE
     Dosage: 2.9 ML/H, 1.7ML START DOSE DAILY
     Route: 050
     Dates: end: 20200108
  2. DUODOPA [Suspect]
     Active Substance: CARBIDOPA\LEVODOPA
     Dosage: 9.0 RATE, 2.7 ML/H
     Route: 050
     Dates: start: 20200109, end: 202001
  3. L-THYROXIN [Concomitant]
     Active Substance: LEVOTHYROXINE SODIUM
     Indication: PRODUCT USED FOR UNKNOWN INDICATION
  4. PANTOPRAZOL [Concomitant]
     Active Substance: PANTOPRAZOLE SODIUM
     Indication: PRODUCT USED FOR UNKNOWN INDICATION
  5. MADOPAR DEPOT [Concomitant]
     Active Substance: BENSERAZIDE HYDROCHLORIDE\LEVODOPA
     Indication: PARKINSON^S DISEASE
     Route: 048
  6. DUODOPA [Suspect]
     Active Substance: CARBIDOPA\LEVODOPA
     Dosage: MD 7ML CRD 2.6ML/H ED 2.5ML
     Route: 050
     Dates: start: 202001, end: 202001
  7. MADOPAR LT [Concomitant]
     Active Substance: BENSERAZIDE HYDROCHLORIDE\LEVODOPA
     Indication: PARKINSON^S DISEASE
     Route: 048
  8. DUODOPA [Suspect]
     Active Substance: CARBIDOPA\LEVODOPA
     Indication: PARKINSON^S DISEASE
     Dosage: MD 7ML; CRD 3.2ML/H; ED 2.5ML
     Route: 050
     Dates: start: 20160719
  9. DUODOPA [Suspect]
     Active Substance: CARBIDOPA\LEVODOPA
     Dosage: MD 7ML CRD 2.4ML/H ED 2.5ML
     Route: 050
     Dates: start: 202001

REACTIONS (7)
  - C-reactive protein increased [Unknown]
  - Blood thyroid stimulating hormone decreased [Unknown]
  - Device breakage [Recovered/Resolved]
  - Blood albumin decreased [Unknown]
  - Hyperkinesia [Not Recovered/Not Resolved]
  - Glomerular filtration rate decreased [Unknown]
  - Hyperkinesia [Recovered/Resolved]

NARRATIVE: CASE EVENT DATE: 201912
